FAERS Safety Report 6417111-1 (Version None)
Quarter: 2009Q4

REPORT INFORMATION
  Report Type: 
  Country: None (occurrence: None)
  Receive Date: 20091027
  Receipt Date: 20091012
  Transmission Date: 20100525
  Serious: Yes (Hospitalization)
  Sender: FDA-Public Use
  Company Number: 1000009516

PATIENT
  Age: 91 Year
  Sex: Male

DRUGS (10)
  1. CITALOPRAM HYDROBROMIDE [Suspect]
     Dosage: 20 MG (20 MG, 1 IN 1 D), ORAL
     Route: 048
     Dates: start: 20090703, end: 20090827
  2. FUROSEMIDE [Concomitant]
  3. AMIODARONE HCL [Concomitant]
  4. DIFFU K [Concomitant]
  5. LEVOTHYROX (TABLETS) [Concomitant]
  6. IKOREL (TABLETS) [Concomitant]
  7. PANTOPRAZOLE [Concomitant]
  8. ALLOPURINOL [Concomitant]
  9. IMOVANE [Concomitant]
  10. ACETYLSALICYLATE LYSINE [Concomitant]

REACTIONS (4)
  - DIZZINESS [None]
  - NAUSEA [None]
  - VERTIGO [None]
  - VOMITING [None]
